FAERS Safety Report 10909499 (Version 1)
Quarter: 2015Q1

REPORT INFORMATION
  Report Type: Spontaneous
  Country: US (occurrence: US)
  Receive Date: 20150312
  Receipt Date: 20150312
  Transmission Date: 20150721
  Serious: No
  Sender: FDA-Public Use
  Company Number: US-SA-2014SA065539

PATIENT
  Age: 63 Year
  Sex: Female

DRUGS (2)
  1. AFRIN [Concomitant]
     Active Substance: OXYMETAZOLINE
     Dosage: TAKEN FROM- FOR MANY YEARS
     Route: 065
  2. NASACORT ALLERGY 24HR [Suspect]
     Active Substance: TRIAMCINOLONE ACETONIDE
     Indication: MULTIPLE ALLERGIES
     Dosage: TAKEN FROM- 4-5 DAYS AGO, DOSE- 2 SPRAYS/NOSTRIL
     Route: 045

REACTIONS (1)
  - Nasal congestion [Unknown]
